FAERS Safety Report 11008194 (Version 3)
Quarter: 2015Q2

REPORT INFORMATION
  Report Type: Spontaneous
  Country: JP (occurrence: JP)
  Receive Date: 20150410
  Receipt Date: 20150624
  Transmission Date: 20150821
  Serious: Yes (Death, Hospitalization, Other)
  Sender: FDA-Public Use
  Company Number: JP-ROCHE-1562079

PATIENT
  Age: 61 Year
  Sex: Female
  Weight: 51 kg

DRUGS (6)
  1. WARFARIN [Interacting]
     Active Substance: WARFARIN
     Indication: VENOUS THROMBOSIS LIMB
     Dosage: DOSAGE IS UNCERTAIN.
     Route: 048
     Dates: start: 20150119, end: 20150123
  2. CISPLATIN. [Concomitant]
     Active Substance: CISPLATIN
     Indication: GASTRIC CANCER
     Dosage: DOSAGE IS UNCERTAIN
     Route: 041
     Dates: start: 20140625
  3. XELODA [Interacting]
     Active Substance: CAPECITABINE
     Indication: GASTRIC CANCER
     Dosage: DOSAGE IS UNCERTAIN.
     Route: 048
     Dates: start: 20150121, end: 20150123
  4. CISPLATIN. [Concomitant]
     Active Substance: CISPLATIN
     Indication: GASTRIC CANCER
     Dosage: DOSAGE IS UNCERTAIN
     Route: 041
     Dates: start: 20150126
  5. XELODA [Suspect]
     Active Substance: CAPECITABINE
     Indication: GASTRIC CANCER
     Dosage: DOSAGE IS UNCERTAIN.
     Route: 048
     Dates: start: 20140625
  6. XELODA [Interacting]
     Active Substance: CAPECITABINE
     Indication: GASTRIC CANCER
     Route: 048
     Dates: start: 20150126

REACTIONS (4)
  - Gastric cancer [Fatal]
  - Prothrombin time ratio abnormal [Unknown]
  - Activated partial thromboplastin time prolonged [Recovered/Resolved]
  - Venous thrombosis limb [Unknown]

NARRATIVE: CASE EVENT DATE: 20150115
